FAERS Safety Report 5387447-4 (Version None)
Quarter: 2007Q3

REPORT INFORMATION
  Report Type: 
  Country: None (occurrence: None)
  Receive Date: 20070712
  Receipt Date: 20070705
  Transmission Date: 20080115
  Serious: Yes (Other)
  Sender: FDA-Public Use
  Company Number: 2007SP013531

PATIENT
  Age: 67 Year
  Sex: Male

DRUGS (6)
  1. PEG-INTRON [Suspect]
     Indication: HEPATIC CIRRHOSIS
     Dosage: 50 MCG; SC
     Route: 058
  2. PEG-INTRON [Suspect]
     Indication: HEPATIC NEOPLASM MALIGNANT
     Dosage: 50 MCG; SC
     Route: 058
  3. FLUOROURACIL [Suspect]
     Indication: HEPATIC CIRRHOSIS
     Dosage: 250 MG; IART
     Route: 013
  4. FLUOROURACIL [Suspect]
     Indication: HEPATIC NEOPLASM MALIGNANT
     Dosage: 250 MG; IART
     Route: 013
  5. CISPLATIN [Suspect]
     Indication: HEPATIC CIRRHOSIS
     Dosage: 10 MG; IART
     Route: 013
  6. CISPLATIN [Suspect]
     Indication: HEPATIC NEOPLASM MALIGNANT
     Dosage: 10 MG; IART
     Route: 013

REACTIONS (5)
  - ANOREXIA [None]
  - BONE MARROW FAILURE [None]
  - GASTROINTESTINAL DISORDER [None]
  - HYPERCALCAEMIA [None]
  - MALIGNANT NEOPLASM PROGRESSION [None]
